FAERS Safety Report 5178725-2 (Version None)
Quarter: 2006Q4

REPORT INFORMATION
  Report Type: 
  Country: None (occurrence: None)
  Receive Date: 20061208
  Receipt Date: 20061127
  Transmission Date: 20070319
  Serious: Yes (Hospitalization, Other)
  Sender: FDA-Public Use
  Company Number: 2006143959

PATIENT
  Age: 78 Year
  Sex: Male

DRUGS (3)
  1. LIPITOR [Suspect]
     Indication: DYSLIPIDAEMIA
     Dosage: 10 MG (10 MG, 1 IN 1 D), ORAL
     Route: 048
     Dates: start: 20061001, end: 20061101
  2. INDAPAMIDE [Concomitant]
  3. VALSARTAN [Concomitant]

REACTIONS (6)
  - ABASIA [None]
  - CARDIOMEGALY [None]
  - CEREBRAL ISCHAEMIA [None]
  - CEREBROVASCULAR ACCIDENT [None]
  - DYSPHONIA [None]
  - FATIGUE [None]
